FAERS Safety Report 9814467 (Version 1)
Quarter: 2014Q1

REPORT INFORMATION
  Report Type: Spontaneous
  Country: US (occurrence: US)
  Receive Date: 20140113
  Receipt Date: 20140113
  Transmission Date: 20141002
  Serious: No
  Sender: FDA-Public Use
  Company Number: US-ENDO PHARMACEUTICALS INC.-HCDA20130150

PATIENT
  Sex: Female

DRUGS (1)
  1. HYDROCODONE BITARTRATE / ACETAMINOPHEN 7.5MG/325MG [Suspect]
     Indication: PAIN
     Dosage: 7.5/325 MG
     Route: 048
     Dates: start: 201310

REACTIONS (1)
  - Somnolence [Not Recovered/Not Resolved]
